FAERS Safety Report 9064486 (Version 1)
Quarter: 2013Q1

REPORT INFORMATION
  Report Type: Spontaneous
  Country: US (occurrence: US)
  Receive Date: 20130128
  Receipt Date: 20130128
  Transmission Date: 20140127
  Serious: Yes (Other)
  Sender: FDA-Public Use
  Company Number: US-JNJFOC-20130112352

PATIENT
  Sex: Female
  Weight: 56.7 kg

DRUGS (2)
  1. EXTRA STRENGTH TYLENOL PM [Suspect]
     Indication: SLEEP DISORDER THERAPY
     Dosage: 1 OR 2 CAPLETS AT NIGHT
     Route: 048
     Dates: start: 20110101
  2. EXTRA STRENGTH TYLENOL PM [Suspect]
     Indication: PAIN
     Dosage: 1 OR 2 CAPLETS AT NIGHT
     Route: 048
     Dates: start: 20110101

REACTIONS (1)
  - Drug dependence [Unknown]
